FAERS Safety Report 22039735 (Version 3)
Quarter: 2023Q1

REPORT INFORMATION
  Report Type: Spontaneous
  Country: IT (occurrence: IT)
  Receive Date: 20230227
  Receipt Date: 20230309
  Transmission Date: 20230417
  Serious: Yes (Other)
  Sender: FDA-Public Use
  Company Number: IT-MYLANLABS-2023M1020212

PATIENT
  Sex: Female

DRUGS (4)
  1. XANAX [Suspect]
     Active Substance: ALPRAZOLAM
     Indication: Panic attack
     Dosage: 10 GTT DROPS, QD
     Route: 065
  2. XANAX [Suspect]
     Active Substance: ALPRAZOLAM
     Indication: Anxiety
     Dosage: 15 GTT DROPS, QD
     Route: 065
  3. XANAX [Suspect]
     Active Substance: ALPRAZOLAM
     Dosage: 15 GTT DROPS, BID
     Route: 065
  4. XANAX [Suspect]
     Active Substance: ALPRAZOLAM
     Dosage: 60 GTT DROPS (60 DROPS AFTER 6 MONTHS OF TAKING IT)
     Route: 065

REACTIONS (19)
  - Apallic syndrome [Recovered/Resolved]
  - Drug dependence [Unknown]
  - Dysstasia [Recovered/Resolved]
  - Malaise [Unknown]
  - Hypertension [Recovered/Resolved]
  - Asthenia [Unknown]
  - Tachycardia [Recovered/Resolved]
  - Generalised anxiety disorder [Unknown]
  - Tremor [Recovered/Resolved]
  - Irritability [Unknown]
  - Aggression [Unknown]
  - Dizziness [Unknown]
  - Fatigue [Unknown]
  - Somnolence [Unknown]
  - Nervousness [Unknown]
  - Hypersomnia [Unknown]
  - Nausea [Recovered/Resolved]
  - Drug tolerance [Unknown]
  - Therapy interrupted [Unknown]
